FAERS Safety Report 16061563 (Version 1)
Quarter: 2019Q2

REPORT INFORMATION
  Report Type: Spontaneous
  Country: US (occurrence: US)
  Receive Date: 20190312
  Receipt Date: 20190312
  Transmission Date: 20190711
  Serious: Yes (Other)
  Sender: FDA-Public Use
  Company Number: None

PATIENT
  Age: 41 Year
  Sex: Female
  Weight: 48.6 kg

DRUGS (3)
  1. AMLODAPIN [Concomitant]
  2. LOSARTIN [Concomitant]
     Active Substance: LOSARTAN
  3. JYNARQUE [Suspect]
     Active Substance: TOLVAPTAN
     Indication: CONGENITAL CYSTIC KIDNEY DISEASE
     Dosage: ?          QUANTITY:1 TABLET(S);?
     Route: 048
     Dates: start: 20190212, end: 20190213

REACTIONS (2)
  - Skin burning sensation [None]
  - Rash generalised [None]

NARRATIVE: CASE EVENT DATE: 20190212
